FAERS Safety Report 16879202 (Version 3)
Quarter: 2020Q1

REPORT INFORMATION
  Report Type: Report from Study
  Country: DE (occurrence: DE)
  Receive Date: 20191003
  Receipt Date: 20200207
  Transmission Date: 20200409
  Serious: Yes (Hospitalization)
  Sender: FDA-Public Use
  Company Number: DE-BIOGEN-2019BI00791119

PATIENT
  Age: 58 Year
  Sex: Female

DRUGS (1)
  1. PLEGRIDY [Suspect]
     Active Substance: PEGINTERFERON BETA-1A
     Indication: MULTIPLE SCLEROSIS
     Route: 058
     Dates: start: 20160510

REACTIONS (6)
  - Colon adenoma [Recovered/Resolved]
  - Stress [Recovered/Resolved]
  - Multiple sclerosis [Not Recovered/Not Resolved]
  - Blood oestrogen increased [Unknown]
  - Blood cholesterol increased [Unknown]
  - White blood cell count decreased [Unknown]

NARRATIVE: CASE EVENT DATE: 2019
